FAERS Safety Report 4651206-8 (Version None)
Quarter: 2005Q2

REPORT INFORMATION
  Report Type: 
  Country: None (occurrence: None)
  Receive Date: 20050503
  Receipt Date: 20050412
  Transmission Date: 20051028
  Serious: Yes (Death, Other)
  Sender: FDA-Public Use
  Company Number: PHBS2005BE05269

PATIENT
  Age: 54 Year
  Sex: Male

DRUGS (6)
  1. ZOMETA [Suspect]
     Indication: METASTASES TO BONE
     Dosage: 4 MG, QMO
     Route: 065
     Dates: start: 20031001, end: 20050330
  2. PLATINUM COMPOUNDS [Concomitant]
     Dates: start: 20031001, end: 20040301
  3. PLATINUM COMPOUNDS [Concomitant]
     Dates: start: 20040901, end: 20050201
  4. ETOPOSIDE [Concomitant]
     Dates: start: 20031001, end: 20040301
  5. ETOPOSIDE [Concomitant]
     Dates: start: 20040901, end: 20050201
  6. RADIOTHERAPY [Concomitant]

REACTIONS (2)
  - DEATH [None]
  - OSTEONECROSIS [None]
